FAERS Safety Report 12838631 (Version 1)
Quarter: 2016Q4

REPORT INFORMATION
  Report Type: Spontaneous
  Country: US (occurrence: US)
  Receive Date: 20161012
  Receipt Date: 20161012
  Transmission Date: 20170207
  Serious: Yes (Hospitalization)
  Sender: FDA-Public Use
  Company Number: US-BAYER-2016-194074

PATIENT
  Age: 80 Year
  Sex: Male

DRUGS (2)
  1. ACETYLSALICYLIC ACID({=100 MG) [Suspect]
     Active Substance: ASPIRIN
     Dosage: UNK
  2. WARFARIN [Interacting]
     Active Substance: WARFARIN
     Dosage: UNK

REACTIONS (4)
  - Nausea [None]
  - Drug administration error [None]
  - Subarachnoid haemorrhage [None]
  - Labelled drug-drug interaction medication error [None]
